FAERS Safety Report 7579054-X (Version None)
Quarter: 2011Q2

REPORT INFORMATION
  Report Type: 
  Country: None (occurrence: None)
  Receive Date: 20110628
  Receipt Date: 20110616
  Transmission Date: 20111010
  Serious: Yes (Other)
  Sender: FDA-Public Use
  Company Number: PHHY2011NZ52990

PATIENT

DRUGS (17)
  1. AMITRIPTYLINE HCL [Concomitant]
  2. ALBUTEROL [Concomitant]
  3. ENOXAPARIN [Concomitant]
  4. ISPAGHULA HUSK [Concomitant]
  5. DOXAZOSIN MESYLATE [Concomitant]
  6. VANCOMYCIN [Concomitant]
     Indication: INFECTION
  7. RIFAMPICIN [Suspect]
     Indication: INFECTION
     Dosage: 300 MG, BID
  8. ALLOPURINOL [Concomitant]
  9. NYSTATIN [Concomitant]
  10. FORMOTEROL FUMARATE [Concomitant]
  11. CALCIUM CARBONATE [Concomitant]
  12. CYCLOSPORINE [Concomitant]
  13. ASPIRIN [Concomitant]
  14. RANITIDINE [Concomitant]
  15. TAMSULOSIN HCL [Concomitant]
  16. COTRIM [Concomitant]
     Indication: INFECTION
  17. PREDNISOLONE [Concomitant]

REACTIONS (8)
  - JOINT STIFFNESS [None]
  - SPINAL COLUMN STENOSIS [None]
  - PERIPHERAL SENSORY NEUROPATHY [None]
  - C-REACTIVE PROTEIN INCREASED [None]
  - OEDEMA PERIPHERAL [None]
  - SERONEGATIVE ARTHRITIS [None]
  - GRIP STRENGTH DECREASED [None]
  - BLOOD FIBRINOGEN INCREASED [None]
